FAERS Safety Report 26004689 (Version 1)
Quarter: 2025Q4

REPORT INFORMATION
  Report Type: Spontaneous
  Country: US (occurrence: US)
  Receive Date: 20251106
  Receipt Date: 20251106
  Transmission Date: 20260118
  Serious: Yes (Life-Threatening, Hospitalization, Disabling)
  Sender: DR REDDYS
  Company Number: US-MLMSERVICE-20251015-PI678062-00206-1

PATIENT
  Age: 62 Year
  Sex: Male

DRUGS (3)
  1. LORAZEPAM [Suspect]
     Active Substance: LORAZEPAM
     Indication: Claustrophobia
     Dosage: AT 6 P.M
     Route: 042
  2. LORAZEPAM [Suspect]
     Active Substance: LORAZEPAM
     Indication: Anxiety
     Dosage: AT 7 A.M
     Route: 042
  3. LORAZEPAM [Suspect]
     Active Substance: LORAZEPAM
     Dosage: AT 10:20 A.M
     Route: 042

REACTIONS (3)
  - Acute psychosis [Recovered/Resolved]
  - Delirium [Recovered/Resolved]
  - Eye excision [Not Recovered/Not Resolved]
